FAERS Safety Report 10794084 (Version 1)
Quarter: 2015Q1

REPORT INFORMATION
  Report Type: Spontaneous
  Country: US (occurrence: US)
  Receive Date: 20150213
  Receipt Date: 20150213
  Transmission Date: 20150721
  Serious: No
  Sender: FDA-Public Use
  Company Number: US-ASTRAZENECA-2015SE11117

PATIENT
  Sex: Female

DRUGS (10)
  1. ARIMIDEX [Suspect]
     Active Substance: ANASTROZOLE
     Indication: PROPHYLAXIS
     Dosage: 1MG
     Route: 048
     Dates: start: 20100801, end: 20140113
  2. CALCIUM [Concomitant]
     Active Substance: CALCIUM
  3. AMLODIPINE BESILATE [Concomitant]
     Active Substance: AMLODIPINE BESYLATE
  4. VITAMIN C [Concomitant]
     Active Substance: ASCORBIC ACID
  5. LUTEA [Concomitant]
  6. FOLIC ACID. [Concomitant]
     Active Substance: FOLIC ACID
  7. PROLIA [Concomitant]
     Active Substance: DENOSUMAB
  8. MAGNESIUM [Concomitant]
     Active Substance: MAGNESIUM
  9. VITAMIN K [Concomitant]
     Active Substance: PHYTONADIONE
  10. EXEMESTANE. [Suspect]
     Active Substance: EXEMESTANE
     Indication: PROPHYLAXIS
     Route: 065
     Dates: start: 20140104, end: 20140110

REACTIONS (2)
  - Muscle injury [Not Recovered/Not Resolved]
  - Pain in extremity [Not Recovered/Not Resolved]
